FAERS Safety Report 5407583-3 (Version None)
Quarter: 2007Q3

REPORT INFORMATION
  Report Type: 
  Country: None (occurrence: None)
  Receive Date: 20070807
  Receipt Date: 20070802
  Transmission Date: 20080115
  Serious: Yes (Hospitalization)
  Sender: FDA-Public Use
  Company Number: EC-BOEHRINGER INGELHEIM PHARMACEUTICALS, INC.-2007-BP-18515EB

PATIENT
  Age: 60 Year
  Sex: Male

DRUGS (2)
  1. MIRAPEX [Suspect]
     Indication: PARKINSON'S DISEASE
     Route: 048
  2. REQUIP [Concomitant]
     Indication: PARKINSON'S DISEASE

REACTIONS (3)
  - FALL [None]
  - JOINT INJURY [None]
  - ORTHOSTATIC HYPOTENSION [None]
